FAERS Safety Report 25412989 (Version 1)
Quarter: 2025Q2

REPORT INFORMATION
  Report Type: Spontaneous
  Country: US (occurrence: US)
  Receive Date: 20250609
  Receipt Date: 20250609
  Transmission Date: 20250716
  Serious: No
  Sender: TRIS PHARMA, INC.
  Company Number: US-TRIS PHARMA, INC.-25US012000

PATIENT

DRUGS (1)
  1. ONYDA XR [Suspect]
     Active Substance: CLONIDINE HYDROCHLORIDE
     Indication: Attention deficit hyperactivity disorder
     Dosage: 1 MILLILITRE, QD
     Route: 048
     Dates: start: 202503

REACTIONS (3)
  - Product packaging quantity issue [Unknown]
  - Wrong technique in product usage process [Unknown]
  - Therapeutic response shortened [Unknown]

NARRATIVE: CASE EVENT DATE: 20250301
